FAERS Safety Report 4676977-6 (Version None)
Quarter: 2005Q2

REPORT INFORMATION
  Report Type: 
  Country: None (occurrence: None)
  Receive Date: 20050526
  Receipt Date: 20050510
  Transmission Date: 20051028
  Serious: Yes (Hospitalization)
  Sender: FDA-Public Use
  Company Number: 2005PL000033

PATIENT
  Age: 84 Year
  Sex: Female

DRUGS (2)
  1. ALLOPURINOL [Suspect]
     Indication: GOUT
     Dosage: 200 MG; QD; PO
     Route: 048
  2. METAMINE HIPPURATE [Concomitant]

REACTIONS (12)
  - ALOPECIA [None]
  - ASTHENIA [None]
  - DEEP VEIN THROMBOSIS [None]
  - DERMATITIS [None]
  - EOSINOPHILIA [None]
  - HAIR COLOUR CHANGES [None]
  - INFLAMMATION [None]
  - RASH MACULO-PAPULAR [None]
  - RASH PRURITIC [None]
  - SKIN EXFOLIATION [None]
  - THERAPY NON-RESPONDER [None]
  - WEIGHT DECREASED [None]
